FAERS Safety Report 7779571-3 (Version None)
Quarter: 2011Q3

REPORT INFORMATION
  Report Type: 
  Country: None (occurrence: None)
  Receive Date: 20110927
  Receipt Date: 20110914
  Transmission Date: 20111222
  Serious: Yes (Hospitalization, Other)
  Sender: FDA-Public Use
  Company Number: ES-RANBAXY-2011R1-48361

PATIENT
  Age: 11 Year
  Sex: Male

DRUGS (4)
  1. NAPROXEN [Suspect]
     Indication: HUMAN HERPESVIRUS 6 INFECTION
  2. NAPROXEN [Suspect]
     Indication: JUVENILE ARTHRITIS
     Dosage: UNK
     Route: 065
  3. SULFASALAZINE [Suspect]
     Indication: HUMAN HERPESVIRUS 6 INFECTION
  4. SULFASALAZINE [Suspect]
     Indication: JUVENILE ARTHRITIS
     Dosage: UNK
     Route: 065

REACTIONS (1)
  - DRUG RASH WITH EOSINOPHILIA AND SYSTEMIC SYMPTOMS [None]
